FAERS Safety Report 12181189 (Version 2)
Quarter: 2016Q1

REPORT INFORMATION
  Report Type: Other
  Country: ES (occurrence: ES)
  Receive Date: 20160315
  Receipt Date: 20160324
  Transmission Date: 20160526
  Serious: Yes (Hospitalization)
  Sender: FDA-Public Use
  Company Number: ES-TAKEDA-2016TEU001702

PATIENT
  Age: 76 Year
  Sex: Female

DRUGS (1)
  1. GLUSTIN [Suspect]
     Active Substance: PIOGLITAZONE HYDROCHLORIDE
     Indication: TYPE 2 DIABETES MELLITUS
     Dosage: 30 MG, QD
     Route: 048
     Dates: start: 2013, end: 20160216

REACTIONS (3)
  - Urine alkalinisation therapy [Recovered/Resolved]
  - Condition aggravated [Recovered/Resolved]
  - Anaemia [Recovering/Resolving]

NARRATIVE: CASE EVENT DATE: 20140806
